FAERS Safety Report 7322704-3 (Version None)
Quarter: 2011Q1

REPORT INFORMATION
  Report Type: 
  Country: None (occurrence: None)
  Receive Date: 20110301
  Receipt Date: 20110223
  Transmission Date: 20110831
  Serious: Yes (Hospitalization)
  Sender: FDA-Public Use
  Company Number: US-PFIZER INC-2011039746

PATIENT

DRUGS (2)
  1. DETROL LA [Suspect]
     Dosage: UNK
  2. VESICARE [Suspect]
     Dosage: UNK

REACTIONS (1)
  - HALLUCINATION [None]
